FAERS Safety Report 5393134-9 (Version None)
Quarter: 2007Q3

REPORT INFORMATION
  Report Type: 
  Country: None (occurrence: None)
  Receive Date: 20070718
  Receipt Date: 20061004
  Transmission Date: 20080115
  Serious: Yes (Hospitalization, Other)
  Sender: FDA-Public Use
  Company Number: 2006123397

PATIENT
  Sex: Female
  Weight: 83.9154 kg

DRUGS (2)
  1. CELEBREX [Suspect]
     Indication: ARTHRITIS
     Dosage: 500 MG, 1 D
  2. BEXTRA [Suspect]
     Indication: ARTHRITIS
     Dosage: 1 D

REACTIONS (1)
  - MYOCARDIAL INFARCTION [None]
